FAERS Safety Report 11238211 (Version 2)
Quarter: 2015Q3

REPORT INFORMATION
  Report Type: Spontaneous
  Country: BR (occurrence: BR)
  Receive Date: 20150703
  Receipt Date: 20150819
  Transmission Date: 20151125
  Serious: Yes (Hospitalization, Other)
  Sender: FDA-Public Use
  Company Number: BR-BRISTOL-MYERS SQUIBB COMPANY-BMS-2015-043189

PATIENT
  Sex: Male
  Weight: 83 kg

DRUGS (8)
  1. GLIFAGE XR [Suspect]
     Active Substance: METFORMIN HYDROCHLORIDE
     Indication: PRODUCT USED FOR UNKNOWN INDICATION
     Dosage: 50 MG, UNK
     Route: 065
     Dates: start: 2005
  2. ALLOPURINOL. [Concomitant]
     Active Substance: ALLOPURINOL
     Indication: BLOOD URIC ACID
     Dosage: 100 MG, UNK
     Route: 065
  3. PANTOPRAZOLE [Concomitant]
     Active Substance: PANTOPRAZOLE SODIUM
     Indication: ADVERSE EVENT
     Dosage: 40 MG, UNK
     Route: 065
     Dates: start: 2014
  4. SELOZOK [Concomitant]
     Active Substance: METOPROLOL SUCCINATE
     Indication: ADVERSE EVENT
     Dosage: 50 MG, BID
     Route: 048
     Dates: start: 201412
  5. VALSARTAN. [Concomitant]
     Active Substance: VALSARTAN
     Indication: DISCOMFORT
     Dosage: UNK, QD
     Route: 065
     Dates: start: 200512
  6. SUCRALFATE. [Concomitant]
     Active Substance: SUCRALFATE
     Indication: ADVERSE EVENT
     Dosage: 1 G, TID
     Route: 065
     Dates: start: 20150615
  7. AMIODARONE [Concomitant]
     Active Substance: AMIODARONE
     Indication: ADVERSE EVENT
     Dosage: 200 MG, UNK
     Route: 065
  8. LIPLESS [Concomitant]
     Active Substance: CIPROFIBRATE
     Indication: BLOOD CHOLESTEROL
     Dosage: UNK
     Route: 065
     Dates: start: 2005

REACTIONS (2)
  - Arrhythmia [Unknown]
  - Surgery [Unknown]
